FAERS Safety Report 6958597-3 (Version None)
Quarter: 2010Q3

REPORT INFORMATION
  Report Type: 
  Country: None (occurrence: None)
  Receive Date: 20100817
  Receipt Date: 20090812
  Transmission Date: 20110219
  Serious: Yes (Hospitalization)
  Sender: FDA-Public Use
  Company Number: 20097051

PATIENT
  Age: 28 Year
  Sex: Male

DRUGS (1)
  1. LIORESAL [Suspect]
     Indication: MUSCLE SPASTICITY
     Dosage: 725 MCG, DAILY, INTRATHECAL - SEE B5
     Route: 037

REACTIONS (8)
  - DRUG INEFFECTIVE [None]
  - HYPERTONIA [None]
  - PAIN [None]
  - PARAESTHESIA [None]
  - PNEUMONIA ASPIRATION [None]
  - PRURITUS [None]
  - PYREXIA [None]
  - WITHDRAWAL SYNDROME [None]
